FAERS Safety Report 4316403-X (Version None)
Quarter: 2004Q1

REPORT INFORMATION
  Report Type: 
  Country: None (occurrence: None)
  Receive Date: 20040312
  Receipt Date: 20040202
  Transmission Date: 20041129
  Serious: Yes (Hospitalization)
  Sender: FDA-Public Use
  Company Number: PHRM2004FR00711

PATIENT
  Age: 78 Year
  Sex: Male

DRUGS (4)
  1. ESIDRIX [Suspect]
     Indication: HYPERTENSION
     Route: 048
     Dates: start: 20031121, end: 20031125
  2. ATENOLOL [Concomitant]
     Indication: HYPERTENSION
     Route: 048
     Dates: start: 20000615, end: 20031121
  3. RIFADIN [Concomitant]
     Route: 048
     Dates: start: 20000615, end: 20031125
  4. PYOSTACINE [Concomitant]
     Indication: STAPHYLOCOCCAL INFECTION
     Dates: start: 20000615

REACTIONS (5)
  - ANGIONEUROTIC OEDEMA [None]
  - LEUKOCYTOCLASTIC VASCULITIS [None]
  - PROTEINURIA [None]
  - PURPURA [None]
  - SKIN NECROSIS [None]
